FAERS Safety Report 6162061-1 (Version None)
Quarter: 2009Q2

REPORT INFORMATION
  Report Type: 
  Country: None (occurrence: None)
  Receive Date: 20090421
  Receipt Date: 20090409
  Transmission Date: 20091009
  Serious: Yes (Death, Hospitalization)
  Sender: FDA-Public Use
  Company Number: US-AVENTIS-200911908GDDC

PATIENT
  Age: 82 Year
  Sex: Male
  Weight: 68.6 kg

DRUGS (13)
  1. TAXOTERE [Suspect]
     Route: 042
     Dates: start: 20080703, end: 20090105
  2. PREDNISONE [Suspect]
     Dosage: DOSE: 100 AS TOTAL DOSE THIS COURSE
     Route: 048
     Dates: start: 20080703, end: 20090114
  3. PREDNISONE [Suspect]
     Route: 042
     Dates: start: 20090115, end: 20090115
  4. CASODEX [Suspect]
     Dosage: DOSE: UNK
     Dates: end: 20081027
  5. LEUPROLIDE ACETATE [Suspect]
     Dosage: DOSE: UNK
     Dates: end: 20081103
  6. RADIATION THERAPY [Suspect]
     Dosage: DOSE: 75.6 GY AS TOTAL DOSE
     Dates: end: 20081027
  7. AGGRENOX [Concomitant]
  8. CALCIUM [Concomitant]
  9. LUTEIN [Concomitant]
  10. SIMVASTATIN [Concomitant]
  11. THERAGRAN-M [Concomitant]
  12. TYLENOL PM                         /00435101/ [Concomitant]
  13. WARFARIN SODIUM [Concomitant]

REACTIONS (8)
  - ACUTE RESPIRATORY FAILURE [None]
  - CEREBROVASCULAR ACCIDENT [None]
  - HYPERGLYCAEMIA [None]
  - INTERNATIONAL NORMALISED RATIO [None]
  - LEUKOCYTOSIS [None]
  - NEUTROPHIL COUNT DECREASED [None]
  - PNEUMONIA [None]
  - PULMONARY EMBOLISM [None]
